FAERS Safety Report 6652720-6 (Version None)
Quarter: 2010Q1

REPORT INFORMATION
  Report Type: 
  Country: None (occurrence: None)
  Receive Date: 20100326
  Receipt Date: 20100318
  Transmission Date: 20100710
  Serious: Yes (Hospitalization)
  Sender: FDA-Public Use
  Company Number: US-KINGPHARMUSA00001-K201000327

PATIENT
  Age: 67 Year
  Sex: Female
  Weight: 64.5 kg

DRUGS (2)
  1. ALTACE [Suspect]
     Indication: HYPERTENSION
     Dosage: 5 MG, QD
     Route: 048
  2. ADALIMUMAB [Concomitant]
     Indication: PSORIATIC ARTHROPATHY

REACTIONS (9)
  - CHILLS [None]
  - DRUG ERUPTION [None]
  - EXFOLIATIVE RASH [None]
  - FATIGUE [None]
  - PUSTULAR PSORIASIS [None]
  - PYREXIA [None]
  - RASH GENERALISED [None]
  - RASH PRURITIC [None]
  - RASH PUSTULAR [None]
